FAERS Safety Report 10774880 (Version 2)
Quarter: 2015Q1

REPORT INFORMATION
  Report Type: Spontaneous
  Country: US (occurrence: US)
  Receive Date: 20150209
  Receipt Date: 20150309
  Transmission Date: 20150721
  Serious: Yes (Hospitalization, Other)
  Sender: FDA-Public Use
  Company Number: US-AMGEN-USASP2015010948

PATIENT
  Age: 41 Year
  Sex: Male
  Weight: 111.11 kg

DRUGS (1)
  1. ENBREL [Suspect]
     Active Substance: ETANERCEPT
     Indication: PSORIASIS
     Dosage: 50 MG, 2 TIMES/WK
     Route: 058
     Dates: start: 201412, end: 201501

REACTIONS (5)
  - Injection site urticaria [Recovered/Resolved]
  - Injection site cellulitis [Recovered/Resolved]
  - Injection site reaction [Recovered/Resolved]
  - Drug hypersensitivity [Unknown]
  - Injection site swelling [Recovered/Resolved]

NARRATIVE: CASE EVENT DATE: 201501
